FAERS Safety Report 6889791-8 (Version None)
Quarter: 2010Q3

REPORT INFORMATION
  Report Type: 
  Country: None (occurrence: None)
  Receive Date: 20100730
  Receipt Date: 20080516
  Transmission Date: 20110219
  Serious: No
  Sender: FDA-Public Use
  Company Number: US-PFIZER INC-2008033357

PATIENT
  Sex: Female
  Weight: 61.363 kg

DRUGS (6)
  1. LIPITOR [Suspect]
     Indication: BLOOD CHOLESTEROL INCREASED
     Route: 048
  2. SYNTHROID [Concomitant]
     Indication: HYPOTHYROIDISM
  3. ACTOS [Concomitant]
     Indication: DIABETES MELLITUS
  4. GLYSET [Concomitant]
     Indication: DIABETES MELLITUS
  5. FOSAMAX PLUS D [Concomitant]
  6. LISINOPRIL [Concomitant]

REACTIONS (1)
  - PRODUCT QUALITY ISSUE [None]
